FAERS Safety Report 8809811 (Version 1)
Quarter: 2012Q4

REPORT INFORMATION
  Report Type: 
  Country: US (occurrence: US)
  Receive Date: 20120926
  Receipt Date: 20120926
  Transmission Date: 20130627
  Serious: Yes (Death)
  Sender: FDA-Public Use
  Company Number: US-ROCHE-1093968

PATIENT
  Age: 67 Year
  Sex: Male

DRUGS (8)
  1. HERCEPTIN [Suspect]
     Indication: B-CELL LYMPHOMA
     Dosage: Loading dose 4 mg/Kg, Maintenance Dose 2 mg/kg
     Route: 065
     Dates: start: 20000406
  2. HERCEPTIN [Suspect]
     Indication: LUNG NEOPLASM MALIGNANT
  3. RITUXAN [Suspect]
     Indication: B-CELL LYMPHOMA
     Route: 065
     Dates: start: 20000405
  4. TAXOTERE [Concomitant]
     Route: 065
     Dates: start: 20000406
  5. NAVELBINE [Concomitant]
     Route: 065
     Dates: start: 20000406
  6. ZOFRAN [Concomitant]
  7. BENADRYL [Concomitant]
     Route: 065
     Dates: start: 20000405
  8. NEUPOGEN [Concomitant]

REACTIONS (4)
  - Death [Fatal]
  - White blood cell count decreased [Unknown]
  - Haemoglobin decreased [Unknown]
  - Body temperature increased [Unknown]
